FAERS Safety Report 22097591 (Version 7)
Quarter: 2023Q2

REPORT INFORMATION
  Report Type: Report from Study
  Country: DE (occurrence: DE)
  Receive Date: 20230315
  Receipt Date: 20230424
  Transmission Date: 20230722
  Serious: Yes (Hospitalization, Other)
  Sender: FDA-Public Use
  Company Number: DE-BIOVITRUM-2023-DE-006651

PATIENT
  Age: 32 Year
  Sex: Female
  Weight: 81 kg

DRUGS (11)
  1. EMAPALUMAB [Suspect]
     Active Substance: EMAPALUMAB
     Indication: Haemophagocytic lymphohistiocytosis
     Dosage: FREQUENCY 1
     Route: 042
     Dates: start: 20230302, end: 20230302
  2. EMAPALUMAB [Suspect]
     Active Substance: EMAPALUMAB
     Indication: Still^s disease
     Dosage: FREQUENCY 1
     Route: 042
     Dates: start: 20230306, end: 20230306
  3. EMAPALUMAB [Suspect]
     Active Substance: EMAPALUMAB
     Dosage: FREQUENCY 1
     Route: 042
     Dates: start: 20230310, end: 20230310
  4. EMAPALUMAB [Suspect]
     Active Substance: EMAPALUMAB
     Dates: start: 20230127
  5. LEVOTHYROXINE SODIUM [Concomitant]
     Active Substance: LEVOTHYROXINE SODIUM
     Indication: Autoimmune thyroiditis
     Dates: start: 2020
  6. PANTOZOL [Concomitant]
     Active Substance: PANTOPRAZOLE SODIUM
     Indication: Prophylaxis
     Dates: start: 2017
  7. CYCLOSPORINE [Concomitant]
     Active Substance: CYCLOSPORINE
     Indication: Still^s disease
     Dates: start: 202209
  8. CHARIVA [Concomitant]
     Indication: Contraception
     Dates: start: 2012
  9. ANAKINRA [Concomitant]
     Active Substance: ANAKINRA
     Indication: Still^s disease
     Dates: start: 20230309
  10. PREDNISOLONE [Concomitant]
     Active Substance: PREDNISOLONE
     Indication: Still^s disease
     Dates: start: 20230309
  11. IBUPROFEN [Concomitant]
     Active Substance: IBUPROFEN
     Indication: Still^s disease
     Dates: start: 20230309

REACTIONS (1)
  - Pneumonia [Recovered/Resolved]

NARRATIVE: CASE EVENT DATE: 20230310
